FAERS Safety Report 8373970-7 (Version None)
Quarter: 2012Q2

REPORT INFORMATION
  Report Type: 
  Country: None (occurrence: None)
  Receive Date: 20120521
  Receipt Date: 20120507
  Transmission Date: 20120825
  Serious: No
  Sender: FDA-Public Use
  Company Number: US-ASTRAZENECA-2012SE29284

PATIENT
  Age: 3 Month
  Sex: Female

DRUGS (1)
  1. ESOMEPRAZOLE MAGNESIUM [Suspect]
     Route: 048

REACTIONS (3)
  - DRUG DOSE OMISSION [None]
  - OFF LABEL USE [None]
  - GASTROOESOPHAGEAL REFLUX DISEASE [None]
